FAERS Safety Report 9549603 (Version 5)
Quarter: 2013Q4

REPORT INFORMATION
  Report Type: Spontaneous
  Country: JP (occurrence: JP)
  Receive Date: 20130924
  Receipt Date: 20131226
  Transmission Date: 20140711
  Serious: Yes (Hospitalization, Other)
  Sender: FDA-Public Use
  Company Number: JP-PFIZER INC-2013269020

PATIENT
  Age: 78 Year
  Sex: Female
  Weight: 38.4 kg

DRUGS (8)
  1. SERTRALINE HCL [Suspect]
     Indication: DEPRESSION
     Dosage: 25 MG, DAILY
     Route: 048
     Dates: start: 20120626, end: 20120627
  2. LUVOX [Interacting]
     Indication: DEPRESSION
     Dosage: UNK
  3. LUVOX [Interacting]
     Dosage: 50 MG, UNK
  4. LUVOX [Interacting]
     Dosage: 75 MG/DAY
  5. MIRTAZAPINE [Suspect]
     Indication: DEPRESSION
     Dosage: 7.5 MG/DAY
  6. ESCITALOPRAM OXALATE [Suspect]
     Indication: DEPRESSION
     Dosage: 15 MG/DAY
  7. DULOXETINE [Suspect]
     Indication: DEPRESSION
     Dosage: 40 MG/DAY
  8. BENZALIN [Interacting]
     Indication: INSOMNIA
     Dosage: 25 MG/DAY
     Route: 048
     Dates: start: 20120622, end: 20120704

REACTIONS (5)
  - Inappropriate antidiuretic hormone secretion [Recovered/Resolved]
  - Fall [Recovered/Resolved]
  - Radius fracture [Recovered/Resolved]
  - Drug interaction [Recovered/Resolved]
  - Nausea [Recovered/Resolved]
